FAERS Safety Report 13697374 (Version 5)
Quarter: 2018Q1

REPORT INFORMATION
  Report Type: Spontaneous
  Country: PE (occurrence: PE)
  Receive Date: 20170628
  Receipt Date: 20180319
  Transmission Date: 20180508
  Serious: Yes (Other)
  Sender: FDA-Public Use
  Company Number: PE-SA-2017SA114564

PATIENT
  Age: 24 Year
  Sex: Female
  Weight: 48 kg

DRUGS (2)
  1. CEREZYME [Suspect]
     Active Substance: IMIGLUCERASE
     Indication: GAUCHER^S DISEASE
     Dosage: DOSE:60 UNIT(S)/KILOGRAM BODYWEIGHT
     Route: 041
     Dates: start: 19991117
  2. CEREZYME [Suspect]
     Active Substance: IMIGLUCERASE
     Indication: GAUCHER^S DISEASE
     Dosage: DOSE:60 UNIT(S)/KILOGRAM BODYWEIGHT
     Route: 041
     Dates: start: 20180113

REACTIONS (4)
  - Pain in extremity [Not Recovered/Not Resolved]
  - Osteonecrosis [Not Recovered/Not Resolved]
  - Bone marrow infiltration [Not Recovered/Not Resolved]
  - Treatment noncompliance [Unknown]

NARRATIVE: CASE EVENT DATE: 2015
